FAERS Safety Report 6815715-5 (Version None)
Quarter: 2010Q3

REPORT INFORMATION
  Report Type: 
  Country: None (occurrence: None)
  Receive Date: 20100702
  Receipt Date: 20100624
  Transmission Date: 20110219
  Serious: Yes (Hospitalization)
  Sender: FDA-Public Use
  Company Number: JP-ABBOTT-10P-087-0639213-00

PATIENT
  Age: 90 Year
  Sex: Male

DRUGS (8)
  1. LEUPLIN DEPOT [Suspect]
     Indication: PROSTATE CANCER
     Route: 058
     Dates: start: 20090901
  2. AMARYL [Concomitant]
     Indication: PRODUCT USED FOR UNKNOWN INDICATION
  3. AMARYL [Concomitant]
     Route: 048
     Dates: start: 20091001, end: 20091101
  4. AMARYL [Concomitant]
     Route: 048
     Dates: start: 20091101, end: 20100412
  5. AMARYL [Concomitant]
     Route: 048
     Dates: start: 20100413, end: 20100420
  6. AMARYL [Concomitant]
     Route: 048
     Dates: start: 20100421
  7. SELBEX [Concomitant]
     Indication: PRODUCT USED FOR UNKNOWN INDICATION
     Route: 048
  8. CEPHADOL [Concomitant]
     Indication: DIZZINESS
     Route: 048

REACTIONS (1)
  - HYPERGLYCAEMIA [None]
